FAERS Safety Report 13483999 (Version 1)
Quarter: 2017Q2

REPORT INFORMATION
  Report Type: Spontaneous
  Country: US (occurrence: US)
  Receive Date: 20170426
  Receipt Date: 20170426
  Transmission Date: 20170830
  Serious: No
  Sender: FDA-Public Use
  Company Number: US-BAYER-2017-079233

PATIENT
  Age: 77 Year
  Sex: Female
  Weight: 68.03 kg

DRUGS (1)
  1. ALEVE [Suspect]
     Active Substance: NAPROXEN SODIUM
     Indication: PAIN
     Dosage: 3 DF, QD (2 ALEVE IN MORNING AND OCCASIONALLY TAKE AN ADDITIONAL ALEVE 8 HOURS LATER IN AFTERNOON)
     Route: 048

REACTIONS (1)
  - Product use issue [Unknown]
